FAERS Safety Report 11137558 (Version 1)
Quarter: 2015Q2

REPORT INFORMATION
  Report Type: Report from Study
  Country: US (occurrence: US)
  Receive Date: 20150526
  Receipt Date: 20150526
  Transmission Date: 20150821
  Serious: Yes (Hospitalization)
  Sender: FDA-Public Use
  Company Number: US-BAYER-2015-166424

PATIENT
  Age: 64 Year
  Sex: Male

DRUGS (1)
  1. NEXAVAR [Suspect]
     Active Substance: SORAFENIB
     Indication: HEPATIC CANCER
     Dosage: 400 MG, BID
     Route: 048
     Dates: start: 20150420, end: 20150420

REACTIONS (8)
  - Seizure [None]
  - Ascites [None]
  - Blood glucose increased [Recovering/Resolving]
  - Blood calcium increased [None]
  - Tremor [None]
  - VIIth nerve paralysis [None]
  - Blood potassium increased [None]
  - Vomiting [None]

NARRATIVE: CASE EVENT DATE: 20150420
